FAERS Safety Report 6250967-4 (Version None)
Quarter: 2009Q2

REPORT INFORMATION
  Report Type: 
  Country: None (occurrence: None)
  Receive Date: 20090630
  Receipt Date: 20090226
  Transmission Date: 20091009
  Serious: No
  Sender: FDA-Public Use
  Company Number: US-ABBOTT-09P-163-0560016-00

PATIENT
  Sex: Female

DRUGS (10)
  1. ZEMPLAR [Suspect]
     Indication: HYPERPARATHYROIDISM
     Dates: start: 20080101, end: 20080501
  2. DEPAKOTE [Concomitant]
     Indication: CONVULSION
  3. LITHIUM [Concomitant]
     Indication: DRUG USE FOR UNKNOWN INDICATION
  4. WELLBUTRIN [Concomitant]
     Indication: DRUG USE FOR UNKNOWN INDICATION
  5. SYNTHROID [Concomitant]
     Indication: DRUG USE FOR UNKNOWN INDICATION
  6. LOPID [Concomitant]
     Indication: DRUG USE FOR UNKNOWN INDICATION
  7. ZETIA [Concomitant]
     Indication: DRUG USE FOR UNKNOWN INDICATION
  8. ASPIRIN [Concomitant]
     Indication: DRUG USE FOR UNKNOWN INDICATION
  9. AMLODIPINE [Concomitant]
     Indication: DRUG USE FOR UNKNOWN INDICATION
  10. LISINOPRIL [Concomitant]
     Indication: DRUG USE FOR UNKNOWN INDICATION

REACTIONS (1)
  - HYPERCALCAEMIA [None]
